FAERS Safety Report 18576621 (Version 2)
Quarter: 2021Q1

REPORT INFORMATION
  Report Type: Spontaneous
  Country: JP (occurrence: JP)
  Receive Date: 20201203
  Receipt Date: 20210129
  Transmission Date: 20210419
  Serious: Yes (Hospitalization, Other)
  Sender: FDA-Public Use
  Company Number: JP-009507513-2011JPN004295J

PATIENT
  Age: 74 Year
  Sex: Male
  Weight: 49 kg

DRUGS (8)
  1. CISPLATIN. [Suspect]
     Active Substance: CISPLATIN
     Indication: SQUAMOUS CELL CARCINOMA OF PHARYNX
     Dosage: 100 MILLIGRAM, Q3W
     Route: 041
     Dates: start: 20201013, end: 20201107
  2. 5?FU [Suspect]
     Active Substance: FLUOROURACIL
     Indication: SQUAMOUS CELL CARCINOMA OF PHARYNX
     Dosage: 4000MG, Q3W
     Route: 041
     Dates: start: 20201013, end: 20201107
  3. KEYTRUDA [Suspect]
     Active Substance: PEMBROLIZUMAB
     Indication: SQUAMOUS CELL CARCINOMA OF PHARYNX
     Dosage: 200 MILLIGRAM, Q3W
     Route: 041
     Dates: start: 20201013, end: 20201107
  4. ERBITUX [Suspect]
     Active Substance: CETUXIMAB
     Indication: METASTASES TO LUNG
     Dosage: 580 MILLIGRAM/DAY
     Route: 042
     Dates: start: 20201201, end: 20201201
  5. APREPITANT. [Concomitant]
     Active Substance: APREPITANT
     Dosage: 125 MILLIGRAM/DAY
     Route: 048
     Dates: start: 20201013, end: 2020
  6. ALOXI [Concomitant]
     Active Substance: PALONOSETRON HYDROCHLORIDE
     Dosage: 0.75 MILLIGRAM/DAY
     Route: 042
     Dates: start: 20201013, end: 20201107
  7. DEXART [Concomitant]
     Active Substance: DEXAMETHASONE SODIUM PHOSPHATE
     Dosage: 8.25 MILLIGRAM/DAY
     Route: 042
     Dates: start: 20201013, end: 20201107
  8. APREPITANT. [Concomitant]
     Active Substance: APREPITANT
     Dosage: 80 MILLIGRAM/DAY
     Route: 048
     Dates: start: 2020, end: 20201107

REACTIONS (3)
  - Acute kidney injury [Recovered/Resolved]
  - Infusion related reaction [Unknown]
  - Anaemia [Not Recovered/Not Resolved]

NARRATIVE: CASE EVENT DATE: 20201105
